FAERS Safety Report 16077940 (Version 1)
Quarter: 2019Q1

REPORT INFORMATION
  Report Type: Spontaneous
  Country: US (occurrence: US)
  Receive Date: 20190315
  Receipt Date: 20190315
  Transmission Date: 20190418
  Serious: Yes (Hospitalization, Other)
  Sender: FDA-Public Use
  Company Number: US-PFIZER INC-2019109049

PATIENT
  Age: 65 Year
  Sex: Female
  Weight: 91 kg

DRUGS (3)
  1. ULTRAM [Concomitant]
     Active Substance: TRAMADOL HYDROCHLORIDE
     Dosage: UNK
  2. LYRICA [Suspect]
     Active Substance: PREGABALIN
     Indication: FIBROMYALGIA
  3. LYRICA [Suspect]
     Active Substance: PREGABALIN
     Indication: PLANTAR FASCIITIS
     Dosage: 25 MG, 3X/DAY
     Route: 048

REACTIONS (9)
  - Hypertension [Unknown]
  - Product use issue [Unknown]
  - Cerebrovascular accident [Recovered/Resolved]
  - Pelvic fracture [Not Recovered/Not Resolved]
  - Back pain [Unknown]
  - Pain [Unknown]
  - Atrial fibrillation [Recovered/Resolved]
  - Intentional product misuse [Unknown]
  - Fractured coccyx [Recovered/Resolved]

NARRATIVE: CASE EVENT DATE: 201711
